FAERS Safety Report 15325622 (Version 5)
Quarter: 2023Q1

REPORT INFORMATION
  Report Type: Spontaneous
  Country: IT (occurrence: IT)
  Receive Date: 20180828
  Receipt Date: 20230220
  Transmission Date: 20230417
  Serious: Yes (Life-Threatening)
  Sender: FDA-Public Use
  Company Number: IT-AMGEN-ITANI2018085787

PATIENT
  Age: 74 Year
  Sex: Female
  Weight: 75 kg

DRUGS (15)
  1. DEXAMETHASONE [Suspect]
     Active Substance: DEXAMETHASONE
     Indication: Plasma cell myeloma
     Dosage: 20 MG (20 MILLIGRAM)
     Route: 065
     Dates: start: 20170613
  2. LENALIDOMIDE [Suspect]
     Active Substance: LENALIDOMIDE
     Indication: Plasma cell myeloma
     Dosage: 25 MG (10 TO 25 MG)
     Route: 065
     Dates: start: 20170613
  3. KYPROLIS [Suspect]
     Active Substance: CARFILZOMIB
     Indication: Plasma cell myeloma
     Dosage: 38 MG (38 MILLIGRAM)
     Route: 042
     Dates: start: 20170613
  4. KYPROLIS [Suspect]
     Active Substance: CARFILZOMIB
     Dosage: 27 MG/M2
     Route: 042
  5. BACTRIM [Concomitant]
     Active Substance: SULFAMETHOXAZOLE\TRIMETHOPRIM
     Indication: Product used for unknown indication
     Dosage: 960 MG (960 MILLIGRAM)
     Route: 065
     Dates: start: 20170613, end: 20180911
  6. ACYCLOVIR [Concomitant]
     Active Substance: ACYCLOVIR
     Indication: Product used for unknown indication
     Dosage: 400 MG (400 MILLIGRAM)
     Route: 065
     Dates: start: 20170613
  7. MOVICOL [Concomitant]
     Active Substance: POLYETHYLENE GLYCOL 3350\POTASSIUM CHLORIDE\SODIUM BICARBONATE\SODIUM CHLORIDE
     Indication: Product used for unknown indication
     Dosage: 1 OT, UNK
     Route: 065
  8. ERYTHROPOIETIN [Concomitant]
     Active Substance: ERYTHROPOIETIN
     Indication: Product used for unknown indication
     Dosage: UNK (40000 OT)
     Route: 065
  9. LYRICA [Concomitant]
     Active Substance: PREGABALIN
     Indication: Product used for unknown indication
     Dosage: 75 MG (75 MILLIGRAM)
     Route: 065
     Dates: start: 20180109, end: 20180821
  10. ASPIRIN [Concomitant]
     Active Substance: ASPIRIN
     Indication: Product used for unknown indication
     Dosage: 100 MG (100 MILLIGRAM)
     Route: 065
     Dates: start: 20170613
  11. LANSOPRAZOLE [Concomitant]
     Active Substance: LANSOPRAZOLE
     Indication: Product used for unknown indication
     Dosage: 15 MG (15 MILLIGRAM)
     Route: 065
     Dates: start: 20170613, end: 20180825
  12. CIPROFLOXACIN [Concomitant]
     Active Substance: CIPROFLOXACIN
     Indication: Product used for unknown indication
     Dosage: 500 MG, (5 DAY)
     Route: 065
     Dates: start: 20170711, end: 20170715
  13. DEXAMETHASONE [Concomitant]
     Active Substance: DEXAMETHASONE
     Indication: Product used for unknown indication
     Dosage: 10 ML, QD
     Route: 065
     Dates: start: 20170704, end: 20170704
  14. TROXERUTIN [Concomitant]
     Active Substance: TROXERUTIN
     Indication: Product used for unknown indication
     Dosage: 1000 MG
     Route: 065
     Dates: start: 20170808, end: 20171002
  15. MOVCOL [Concomitant]
     Indication: Product used for unknown indication
     Dosage: UNK (1)
     Route: 065
     Dates: start: 20170808, end: 20180724

REACTIONS (2)
  - Neutropenia [Recovered/Resolved]
  - Pancytopenia [Unknown]

NARRATIVE: CASE EVENT DATE: 20180206
